FAERS Safety Report 9277075 (Version 6)
Quarter: 2015Q2

REPORT INFORMATION
  Report Type: Spontaneous
  Country: US (occurrence: US)
  Receive Date: 20130507
  Receipt Date: 20150421
  Transmission Date: 20150821
  Serious: Yes (Hospitalization, Disabling)
  Sender: FDA-Public Use
  Company Number: US-MERCK-1305USA001558

PATIENT
  Sex: Male

DRUGS (7)
  1. FINASTERIDE. [Suspect]
     Active Substance: FINASTERIDE
     Indication: ANDROGENETIC ALOPECIA
     Dosage: 1.25 MG, UNK
     Route: 048
     Dates: start: 20090104, end: 20110429
  2. FINASTERIDE. [Suspect]
     Active Substance: FINASTERIDE
     Dosage: 5 MG, CUT PILLS IN HALF TO TAKE 2.5 MG, QD
     Route: 048
     Dates: start: 20081027
  3. FINASTERIDE. [Suspect]
     Active Substance: FINASTERIDE
     Indication: ANDROGENETIC ALOPECIA
     Dosage: 1.25 MG, UNK
     Route: 048
     Dates: start: 20090104, end: 20110429
  4. FINASTERIDE. [Suspect]
     Active Substance: FINASTERIDE
     Dosage: 2.5 MG, QD
     Route: 048
     Dates: start: 20090225
  5. PROSCAR [Suspect]
     Active Substance: FINASTERIDE
     Dosage: UNK
     Route: 048
  6. DOXYCYCLINE. [Concomitant]
     Active Substance: DOXYCYCLINE
     Indication: ROSACEA
     Dosage: 100 MG, BID
     Route: 048
     Dates: start: 200810
  7. FINASTERIDE. [Suspect]
     Active Substance: FINASTERIDE
     Dosage: 5 MG, UNK
     Route: 048
     Dates: start: 20081027, end: 20110429

REACTIONS (10)
  - Cognitive disorder [Not Recovered/Not Resolved]
  - Sexual dysfunction [Not Recovered/Not Resolved]
  - Wrong technique in drug usage process [Unknown]
  - Wrong technique in drug usage process [Unknown]
  - Back disorder [Unknown]
  - Pain in extremity [Unknown]
  - Drug administration error [Unknown]
  - Overdose [Unknown]
  - Peripheral vascular disorder [Unknown]
  - Erectile dysfunction [Unknown]

NARRATIVE: CASE EVENT DATE: 20081027
